FAERS Safety Report 12881485 (Version 3)
Quarter: 2017Q1

REPORT INFORMATION
  Report Type: Report from Study
  Country: BR (occurrence: BR)
  Receive Date: 20161025
  Receipt Date: 20170125
  Transmission Date: 20170428
  Serious: Yes (Hospitalization)
  Sender: FDA-Public Use
  Company Number: PHHY2016BR145623

PATIENT
  Sex: Female
  Weight: 89 kg

DRUGS (1)
  1. EXJADE [Suspect]
     Active Substance: DEFERASIROX
     Indication: MYELODYSPLASTIC SYNDROME
     Dosage: 1000 MG, QD
     Route: 048
     Dates: start: 2016

REACTIONS (7)
  - Drug intolerance [Unknown]
  - Abdominal discomfort [Unknown]
  - Pain [Unknown]
  - Cerebrovascular accident [Unknown]
  - Malaise [Unknown]
  - Diarrhoea [Unknown]
  - Eating disorder [Unknown]
